FAERS Safety Report 7946625 (Version 3)
Quarter: 2013Q1

REPORT INFORMATION
  Report Type: Report from Study
  Country: DE (occurrence: DE)
  Receive Date: 20110516
  Receipt Date: 20130312
  Transmission Date: 20140127
  Serious: Yes (Other)
  Sender: FDA-Public Use
  Company Number: DE-CELGENEUS-062-21660-11051440

PATIENT
  Sex: Female

DRUGS (2)
  1. ABRAXANE [Suspect]
     Indication: BREAST CANCER
     Dosage: 100 MILLIGRAM/SQ. METER
     Route: 065
  2. XELODA [Suspect]
     Indication: BREAST CANCER
     Dosage: 2000 MILLIGRAM/SQ. METER
     Route: 065

REACTIONS (1)
  - Circulatory collapse [Recovered/Resolved]
